FAERS Safety Report 4991787-8 (Version None)
Quarter: 2006Q2

REPORT INFORMATION
  Report Type: 
  Country: None (occurrence: None)
  Receive Date: 20060504
  Receipt Date: 20060425
  Transmission Date: 20061013
  Serious: Yes (Other)
  Sender: FDA-Public Use
  Company Number: US-AVENTIS-200613811US

PATIENT
  Age: 50 Year
  Sex: Female

DRUGS (2)
  1. KETEK [Suspect]
     Indication: ACUTE SINUSITIS
     Dosage: DOSE: UNKNOWN
     Dates: start: 20060301
  2. PHENOBARBITAL TAB [Concomitant]
     Dosage: DOSE: UNK

REACTIONS (8)
  - ABDOMINAL PAIN [None]
  - CONFUSIONAL STATE [None]
  - HEPATITIS [None]
  - HEPATOTOXICITY [None]
  - JAUNDICE [None]
  - LIVER FUNCTION TEST ABNORMAL [None]
  - LIVER TRANSPLANT [None]
  - PYREXIA [None]
